FAERS Safety Report 4975072-6 (Version None)
Quarter: 2006Q2

REPORT INFORMATION
  Report Type: 
  Country: None (occurrence: None)
  Receive Date: 20060418
  Receipt Date: 20051208
  Transmission Date: 20061013
  Serious: Yes (Other)
  Sender: FDA-Public Use
  Company Number: FR-AVENTIS-200514096FR

PATIENT
  Age: 71 Year
  Sex: Female
  Weight: 73 kg

DRUGS (8)
  1. ARAVA [Suspect]
     Indication: RHEUMATOID ARTHRITIS
     Route: 048
     Dates: start: 20030601
  2. ARAVA [Suspect]
     Route: 048
  3. COAPROVEL [Suspect]
     Indication: HYPERTENSION
     Route: 048
     Dates: start: 20020401
  4. DIFFU K [Concomitant]
     Route: 048
     Dates: start: 20010901
  5. ELISOR [Concomitant]
     Route: 048
     Dates: start: 20050801, end: 20060309
  6. CORTANCYL [Concomitant]
     Indication: RHEUMATOID ARTHRITIS
     Route: 048
     Dates: start: 20010901
  7. ACTONEL [Concomitant]
     Indication: OSTEOPOROSIS PROPHYLAXIS
     Route: 048
     Dates: start: 20020101
  8. CALCIUM WITH VITAMIN D [Concomitant]
     Route: 048
     Dates: start: 20020101

REACTIONS (4)
  - BLOOD CREATININE INCREASED [None]
  - BLOOD UREA INCREASED [None]
  - RENAL FAILURE [None]
  - TRANSAMINASES INCREASED [None]
